FAERS Safety Report 13765266 (Version 2)
Quarter: 2017Q3

REPORT INFORMATION
  Report Type: Spontaneous
  Country: IL (occurrence: IL)
  Receive Date: 20170718
  Receipt Date: 20170821
  Transmission Date: 20171127
  Serious: Yes (Other)
  Sender: FDA-Public Use
  Company Number: IL-SA-2017SA127723

PATIENT
  Age: 56 Year
  Sex: Male

DRUGS (3)
  1. BUSULFAN. [Concomitant]
     Active Substance: BUSULFAN
  2. FLUDARABINE [Concomitant]
     Active Substance: FLUDARABINE PHOSPHATE
  3. THYMOGLOBULIN [Suspect]
     Active Substance: LAPINE T-LYMPHOCYTE IMMUNE GLOBULIN
     Indication: STEM CELL TRANSPLANT
     Route: 065
     Dates: start: 20170521, end: 20170522

REACTIONS (10)
  - Dyspnoea [Recovered/Resolved]
  - Non-cardiogenic pulmonary oedema [Recovered/Resolved]
  - Pulmonary congestion [Recovered/Resolved]
  - Asthenia [Unknown]
  - Tachypnoea [Unknown]
  - Respiratory distress [Recovered/Resolved]
  - Wheezing [Unknown]
  - Hypophagia [Unknown]
  - Chills [Unknown]
  - Pyrexia [Unknown]

NARRATIVE: CASE EVENT DATE: 20170522
